FAERS Safety Report 5832772-3 (Version None)
Quarter: 2008Q3

REPORT INFORMATION
  Report Type: 
  Country: None (occurrence: None)
  Receive Date: 20080804
  Receipt Date: 20080724
  Transmission Date: 20090109
  Serious: Yes (Hospitalization)
  Sender: FDA-Public Use
  Company Number: FR-WYE-H05323008

PATIENT
  Sex: Female

DRUGS (7)
  1. CORDARONE [Suspect]
     Route: 048
     Dates: start: 20080609, end: 20080614
  2. LASIX [Concomitant]
  3. PREVISCAN [Concomitant]
     Dosage: UNSPECIFIED
     Route: 048
  4. GLEEVEC [Concomitant]
     Dosage: UNSPECIFIED
     Route: 048
  5. NEORECORMON [Concomitant]
  6. ODRIK [Concomitant]
     Indication: HYPERTENSION
     Route: 048
     Dates: start: 20080609, end: 20080616
  7. EFFEXOR [Concomitant]
     Dosage: UNSPECIFIED
     Route: 048

REACTIONS (2)
  - ECZEMA [None]
  - TOXIC SKIN ERUPTION [None]
